FAERS Safety Report 20882509 (Version 1)
Quarter: 2022Q2

REPORT INFORMATION
  Report Type: Spontaneous
  Country: US (occurrence: US)
  Receive Date: 20220527
  Receipt Date: 20220527
  Transmission Date: 20220720
  Serious: Yes (Disabling, Other)
  Sender: FDA-Public Use
  Company Number: US-MERCK-1201USA00341

PATIENT
  Sex: Female
  Weight: 72.562 kg

DRUGS (3)
  1. FOSAMAX [Suspect]
     Active Substance: ALENDRONATE SODIUM
     Indication: Osteoporosis
     Dosage: 10 MILLIGRAM, QD
     Route: 048
     Dates: start: 1997, end: 20001127
  2. FOSAMAX [Suspect]
     Active Substance: ALENDRONATE SODIUM
     Dosage: 70 MILLIGRAM, QW
     Route: 048
     Dates: start: 20001127, end: 2010
  3. BONIVA [Suspect]
     Active Substance: IBANDRONATE SODIUM
     Indication: Osteoporosis
     Dosage: 150 MG, QM
     Route: 048

REACTIONS (20)
  - Low turnover osteopathy [Not Recovered/Not Resolved]
  - Syncope [Unknown]
  - Femur fracture [Not Recovered/Not Resolved]
  - Fall [Unknown]
  - Tooth disorder [Unknown]
  - Hypertension [Not Recovered/Not Resolved]
  - Fall [Unknown]
  - Gynaecological examination abnormal [Unknown]
  - Urinary tract infection [Recovering/Resolving]
  - Breast calcifications [Unknown]
  - Aortic aneurysm [Unknown]
  - Spinal stenosis [Unknown]
  - Anxiety [Not Recovered/Not Resolved]
  - Depression [Unknown]
  - Bursitis [Unknown]
  - Osteoarthritis [Unknown]
  - Compression fracture [Unknown]
  - Scoliosis [Unknown]
  - Blood cholesterol increased [Unknown]
  - Constipation [Unknown]

NARRATIVE: CASE EVENT DATE: 20010101
